FAERS Safety Report 11098320 (Version 3)
Quarter: 2015Q3

REPORT INFORMATION
  Report Type: Report from Study
  Country: TR (occurrence: TR)
  Receive Date: 20150507
  Receipt Date: 20150803
  Transmission Date: 20151125
  Serious: Yes (Hospitalization)
  Sender: FDA-Public Use
  Company Number: TR-ABBVIE-15P-161-1387450-00

PATIENT
  Age: 69 Year
  Sex: Female
  Weight: 96 kg

DRUGS (1)
  1. DUODOPA [Suspect]
     Active Substance: CARBIDOPA\LEVODOPA
     Indication: PARKINSON^S DISEASE
     Dosage: MORNING DOSE: 10.1, CONTINUOUS RATE: 1.9, EXTRA DOSE: 1.0
     Route: 050
     Dates: start: 20150428, end: 20150630

REACTIONS (3)
  - Back pain [Recovered/Resolved]
  - Chest pain [Recovered/Resolved]
  - Pneumoperitoneum [Recovered/Resolved]

NARRATIVE: CASE EVENT DATE: 20150504
